FAERS Safety Report 6077960-9 (Version None)
Quarter: 2009Q1

REPORT INFORMATION
  Report Type: 
  Country: None (occurrence: None)
  Receive Date: 20090213
  Receipt Date: 20090213
  Transmission Date: 20090719
  Serious: Yes (Hospitalization)
  Sender: FDA-Public Use
  Company Number: DE-EISAI MEDICAL RESEARCH-E2080-00111-SPO-DE

PATIENT
  Age: 39 Year
  Sex: Male

DRUGS (1)
  1. INOVELON [Suspect]
     Indication: LENNOX-GASTAUT SYNDROME
     Route: 048
     Dates: start: 20081001, end: 20090120

REACTIONS (2)
  - ATONIC SEIZURES [None]
  - HEAD INJURY [None]
